FAERS Safety Report 13577659 (Version 2)
Quarter: 2017Q2

REPORT INFORMATION
  Report Type: Spontaneous
  Country: NL (occurrence: NL)
  Receive Date: 20170524
  Receipt Date: 20170609
  Transmission Date: 20170830
  Serious: Yes (Other)
  Sender: FDA-Public Use
  Company Number: NL-BAUSCH-BL-2017-017169

PATIENT
  Age: 5 Year
  Sex: Female

DRUGS (1)
  1. DEXAMETHASONE. [Suspect]
     Active Substance: DEXAMETHASONE
     Indication: ECZEMA
     Route: 065
     Dates: start: 2015

REACTIONS (1)
  - Cushing^s syndrome [Recovered/Resolved]

NARRATIVE: CASE EVENT DATE: 2015
